FAERS Safety Report 7003721-X (Version None)
Quarter: 2010Q3

REPORT INFORMATION
  Report Type: 
  Country: None (occurrence: None)
  Receive Date: 20100920
  Receipt Date: 20100112
  Transmission Date: 20110219
  Serious: No
  Sender: FDA-Public Use
  Company Number: US-WYE-H11123509

PATIENT
  Age: 48 Year
  Sex: Male
  Weight: 136.2 kg

DRUGS (5)
  1. PRISTIQ [Suspect]
     Indication: DEPRESSION
     Route: 048
  2. NIASPAN [Concomitant]
  3. OSTEO BIFLEX TRIPLE STRENGTH [Concomitant]
  4. LIPITOR [Concomitant]
  5. FISH OIL [Concomitant]

REACTIONS (1)
  - IRRITABILITY [None]
